FAERS Safety Report 17217584 (Version 1)
Quarter: 2019Q4

REPORT INFORMATION
  Report Type: Spontaneous
  Country: CH (occurrence: CH)
  Receive Date: 20191231
  Receipt Date: 20191231
  Transmission Date: 20200122
  Serious: Yes (Hospitalization)
  Sender: FDA-Public Use
  Company Number: CH-ROCHE-2503270

PATIENT
  Age: 72 Year
  Sex: Female

DRUGS (5)
  1. PRIVIGEN [Suspect]
     Active Substance: HUMAN IMMUNOGLOBULIN G
     Indication: PRODUCT USED FOR UNKNOWN INDICATION
     Dosage: PRIVIGEN DEC/2018 OR JAN/2019, PREVIOUSLY ONE-TIME IVIG (NO FURTHER DETAILS) ON 26/MAY/2017 I.V. ; I
     Route: 041
     Dates: start: 201812, end: 201812
  2. MABTHERA [Suspect]
     Active Substance: RITUXIMAB
     Indication: PRODUCT USED FOR UNKNOWN INDICATION
     Dosage: LAST 29/NOV/2017, 29/MAY/2018 AND DEC/2018
     Route: 065
     Dates: start: 201512, end: 201812
  3. CUVITRU [Suspect]
     Active Substance: HUMAN IMMUNOGLOBULIN G
     Indication: PRODUCT USED FOR UNKNOWN INDICATION
     Route: 058
     Dates: start: 201709, end: 201908
  4. VI-DE 3 [Concomitant]
     Active Substance: CHOLECALCIFEROL
     Route: 065
     Dates: start: 201603, end: 201810
  5. VI-DE 3 [Concomitant]
     Active Substance: CHOLECALCIFEROL
     Dosage: STOP WITH HYPERVITAMINOSIS OCT/2018 - FEB/2019 AND SINCE MAY/2019 (VIT D IN THE PLASMA 181 NMOL / L
     Route: 065
     Dates: start: 201902, end: 201905

REACTIONS (1)
  - Liver disorder [Recovering/Resolving]

NARRATIVE: CASE EVENT DATE: 201810
